FAERS Safety Report 19253184 (Version 2)
Quarter: 2021Q2

REPORT INFORMATION
  Report Type: Spontaneous
  Country: US (occurrence: US)
  Receive Date: 20210513
  Receipt Date: 20210527
  Transmission Date: 20210717
  Serious: Yes (Other)
  Sender: FDA-Public Use
  Company Number: US-SA-2021SA158399

PATIENT
  Age: 28 Year
  Sex: Female

DRUGS (1)
  1. DUPIXENT [Suspect]
     Active Substance: DUPILUMAB
     Indication: CHRONIC RHINOSINUSITIS WITH NASAL POLYPS
     Dosage: 300 MG, QOW
     Route: 058
     Dates: start: 20210428

REACTIONS (2)
  - Epistaxis [Unknown]
  - Unevaluable event [Unknown]

NARRATIVE: CASE EVENT DATE: 2021
